FAERS Safety Report 8028043-X (Version None)
Quarter: 2012Q1

REPORT INFORMATION
  Report Type: 
  Country: None (occurrence: None)
  Receive Date: 20120106
  Receipt Date: 20111226
  Transmission Date: 20120608
  Serious: Yes (Other)
  Sender: FDA-Public Use
  Company Number: FR-ROCHE-1026620

PATIENT

DRUGS (9)
  1. DEXAMETHASONE [Suspect]
     Indication: CENTRAL NERVOUS SYSTEM LYMPHOMA
  2. MABTHERA [Suspect]
     Indication: CENTRAL NERVOUS SYSTEM LYMPHOMA
  3. METHYLPREDNISOLONE [Suspect]
     Indication: CENTRAL NERVOUS SYSTEM LYMPHOMA
  4. ETOPOSIDE [Suspect]
     Indication: CENTRAL NERVOUS SYSTEM LYMPHOMA
  5. CYCLOPHOSPHAMIDE [Suspect]
     Indication: CENTRAL NERVOUS SYSTEM LYMPHOMA
  6. CISPLATIN [Suspect]
     Indication: CENTRAL NERVOUS SYSTEM LYMPHOMA
  7. THIOTEPA [Suspect]
     Indication: CENTRAL NERVOUS SYSTEM LYMPHOMA
     Dosage: DAYS 9 THROUGH 7
  8. CYTARABINE [Suspect]
     Indication: CENTRAL NERVOUS SYSTEM LYMPHOMA
  9. BUSULFAN [Suspect]
     Indication: CENTRAL NERVOUS SYSTEM LYMPHOMA
     Dosage: DAYS 6 THROUGH 4

REACTIONS (5)
  - THROMBOCYTOPENIA [None]
  - ANAEMIA [None]
  - NEUTROPENIA [None]
  - FEBRILE NEUTROPENIA [None]
  - NEPHROPATHY TOXIC [None]
